FAERS Safety Report 9068665 (Version 2)
Quarter: 2013Q1

REPORT INFORMATION
  Report Type: Spontaneous
  Country: US (occurrence: US)
  Receive Date: 20130206
  Receipt Date: 20130213
  Transmission Date: 20140127
  Serious: No
  Sender: FDA-Public Use
  Company Number: US-009507513-1301USA010931

PATIENT
  Age: 44 None
  Sex: Female
  Weight: 99.77 kg

DRUGS (2)
  1. CLARITIN [Suspect]
     Indication: RHINORRHOEA
     Dosage: UNK, UNKNOWN
     Route: 048
     Dates: start: 20130116
  2. CLARITIN [Suspect]
     Indication: SNEEZING

REACTIONS (3)
  - Rash macular [Recovered/Resolved]
  - Dizziness [Unknown]
  - Malaise [Unknown]
